FAERS Safety Report 8117249-7 (Version None)
Quarter: 2012Q1

REPORT INFORMATION
  Report Type: 
  Country: None (occurrence: None)
  Receive Date: 20120206
  Receipt Date: 20120203
  Transmission Date: 20120608
  Serious: No
  Sender: FDA-Public Use
  Company Number: US-PFIZER INC-2012030860

PATIENT
  Sex: Male
  Weight: 104.31 kg

DRUGS (3)
  1. DILANTIN [Suspect]
     Indication: EPILEPSY
     Dosage: 400 MG, 2X/DAY
     Route: 048
  2. DEPAKOTE [Concomitant]
     Indication: EPILEPSY
     Dosage: UNK
  3. NEURONTIN [Suspect]
     Indication: EPILEPSY
     Dosage: 300 MG, 1X/DAY
     Route: 048

REACTIONS (1)
  - TREMOR [None]
